FAERS Safety Report 14222470 (Version 11)
Quarter: 2019Q1

REPORT INFORMATION
  Report Type: Report from Study
  Country: GB (occurrence: GB)
  Receive Date: 20171124
  Receipt Date: 20190214
  Transmission Date: 20190417
  Serious: Yes (Other)
  Sender: FDA-Public Use
  Company Number: GB-ROCHE-2024612

PATIENT
  Sex: Male

DRUGS (5)
  1. ESBRIET [Suspect]
     Active Substance: PIRFENIDONE
     Route: 048
  2. PREDNISOLONE. [Concomitant]
     Active Substance: PREDNISOLONE
     Dosage: 5 MG OD THIS WEEK AND 5 MG ALTERNATE DAYS NEXT WEEK
     Route: 065
  3. IBUPROFEN. [Concomitant]
     Active Substance: IBUPROFEN
     Indication: FOOT DEFORMITY
  4. ESBRIET [Suspect]
     Active Substance: PIRFENIDONE
     Indication: IDIOPATHIC PULMONARY FIBROSIS
     Route: 048
  5. ESBRIET [Suspect]
     Active Substance: PIRFENIDONE
     Route: 048
     Dates: start: 20170904

REACTIONS (34)
  - Cough [Unknown]
  - Muscle strain [Unknown]
  - Constipation [Unknown]
  - Abdominal distension [Unknown]
  - Somnolence [Unknown]
  - Influenza [Unknown]
  - Foot deformity [Unknown]
  - Decreased appetite [Unknown]
  - Peripheral swelling [Unknown]
  - Nasopharyngitis [Recovering/Resolving]
  - Sneezing [Unknown]
  - Acne [Unknown]
  - Neck pain [Unknown]
  - Weight decreased [Unknown]
  - Swelling face [Unknown]
  - Skin disorder [Unknown]
  - Lower respiratory tract infection [Unknown]
  - Arthralgia [Unknown]
  - Ocular discomfort [Unknown]
  - Mood altered [Unknown]
  - Hypoacusis [Unknown]
  - Malaise [Unknown]
  - Dyspnoea [Unknown]
  - Tooth disorder [Unknown]
  - Claustrophobia [Unknown]
  - Headache [Unknown]
  - Poor quality sleep [Unknown]
  - Nausea [Unknown]
  - Infection [Unknown]
  - Abdominal discomfort [Unknown]
  - Oral candidiasis [Unknown]
  - Rash [Unknown]
  - Wheezing [Unknown]
  - Alopecia [Unknown]
